FAERS Safety Report 8093973-X (Version None)
Quarter: 2012Q1

REPORT INFORMATION
  Report Type: 
  Country: None (occurrence: None)
  Receive Date: 20120130
  Receipt Date: 20120117
  Transmission Date: 20120608
  Serious: Yes (Hospitalization)
  Sender: FDA-Public Use
  Company Number: AU-UCBSA-042975

PATIENT
  Sex: Female

DRUGS (4)
  1. VALPROATE SODIUM [Suspect]
     Dosage: DOSE INCREASED AND LATER DISCONTINUED
     Route: 048
     Dates: end: 20110101
  2. KEPPRA [Suspect]
     Indication: EPILEPSY
     Route: 048
     Dates: start: 20010101
  3. VALPROATE SODIUM [Suspect]
     Indication: EPILEPSY
     Route: 048
  4. VIMPAT [Suspect]
     Indication: EPILEPSY
     Route: 048
     Dates: start: 20110101, end: 20111003

REACTIONS (3)
  - CONVULSION [None]
  - TOXIC ENCEPHALOPATHY [None]
  - HAEMOLYSIS [None]
